FAERS Safety Report 12730681 (Version 1)
Quarter: 2016Q3

REPORT INFORMATION
  Report Type: Spontaneous
  Country: US (occurrence: US)
  Receive Date: 20160910
  Receipt Date: 20160910
  Transmission Date: 20161109
  Serious: No
  Sender: FDA-Public Use
  Company Number: PHEH2016US022486

PATIENT
  Sex: Male

DRUGS (1)
  1. AFINITOR [Suspect]
     Active Substance: EVEROLIMUS
     Indication: RENAL CANCER
     Dosage: 5 MG, UNK
     Route: 048

REACTIONS (4)
  - Dyspnoea [Recovering/Resolving]
  - Bone pain [Recovering/Resolving]
  - Cough [Recovering/Resolving]
  - Chest discomfort [Recovered/Resolved]
